FAERS Safety Report 4772115-X (Version None)
Quarter: 2005Q3

REPORT INFORMATION
  Report Type: 
  Country: None (occurrence: None)
  Receive Date: 20050919
  Receipt Date: 20050804
  Transmission Date: 20060218
  Serious: Yes (Hospitalization)
  Sender: FDA-Public Use
  Company Number: FR-RB-1939-2005

PATIENT
  Age: 42 Year
  Sex: Female

DRUGS (10)
  1. BUPRENORPHINE HCL [Suspect]
     Indication: DRUG USE FOR UNKNOWN INDICATION
     Route: 048
     Dates: end: 20050706
  2. BUPRENORPHINE HCL [Suspect]
     Dosage: DOSAGE UNKNOWN
     Route: 048
     Dates: start: 20050708
  3. DIAZEPAM [Suspect]
     Indication: DRUG USE FOR UNKNOWN INDICATION
     Route: 048
     Dates: end: 20050706
  4. DIAZEPAM [Suspect]
     Dosage: DOSAGE UNKNOWN
     Route: 048
     Dates: start: 20050708
  5. SERTRALINE HYDROCHLORIDE [Suspect]
     Indication: DEPRESSION
     Route: 048
     Dates: end: 20050706
  6. SERTRALINE HYDROCHLORIDE [Suspect]
     Route: 048
     Dates: start: 20050708, end: 20050709
  7. SERTRALINE HYDROCHLORIDE [Suspect]
     Dosage: DOSAGE UNKNOWN
     Route: 048
     Dates: start: 20050712, end: 20050713
  8. ACEBUTOLOL HCL [Concomitant]
     Indication: MYOCARDIAL INFARCTION
     Dosage: UNKNOWN DOSAGE
     Route: 065
     Dates: end: 20050706
  9. RAMIPRIL [Concomitant]
     Indication: MYOCARDIAL INFARCTION
     Dosage: DOSAGE UNKNOWN
     Route: 048
     Dates: end: 20050706
  10. ACETYLSALICYLATE LYSINE [Concomitant]
     Indication: MYOCARDIAL INFARCTION
     Route: 048
     Dates: end: 20050706

REACTIONS (2)
  - CONVULSION [None]
  - DEPRESSION [None]
